FAERS Safety Report 4622625-0 (Version None)
Quarter: 2005Q1

REPORT INFORMATION
  Report Type: 
  Country: None (occurrence: None)
  Receive Date: 20050330
  Receipt Date: 20050321
  Transmission Date: 20050727
  Serious: Yes (Life-Threatening)
  Sender: FDA-Public Use
  Company Number: US-MERCK-0503USA03641

PATIENT
  Age: 61 Year
  Sex: Male

DRUGS (5)
  1. VIOXX [Suspect]
     Indication: ARTHRITIS
     Route: 048
     Dates: end: 20041001
  2. LIPITOR [Concomitant]
     Route: 065
  3. ZOLOFT [Concomitant]
     Route: 065
  4. ATENOLOL [Concomitant]
     Route: 065
  5. CODEINE [Concomitant]
     Route: 065

REACTIONS (4)
  - CHEST PAIN [None]
  - EAR PAIN [None]
  - HEART RATE DECREASED [None]
  - TINNITUS [None]
